FAERS Safety Report 7842174-6 (Version None)
Quarter: 2011Q4

REPORT INFORMATION
  Report Type: 
  Country: None (occurrence: None)
  Receive Date: 20111025
  Receipt Date: 20111019
  Transmission Date: 20120403
  Serious: Yes (Death, Hospitalization)
  Sender: FDA-Public Use
  Company Number: ES-SANOFI-AVENTIS-2011SA055299

PATIENT
  Age: 64 Year
  Sex: Male
  Weight: 85 kg

DRUGS (2)
  1. CABAZITAXEL [Suspect]
     Route: 042
     Dates: start: 20110818, end: 20110818
  2. PREDNISONE [Suspect]
     Dates: start: 20110818, end: 20110821

REACTIONS (2)
  - ILEUS PARALYTIC [None]
  - PNEUMONIA [None]
